FAERS Safety Report 4797346-4 (Version None)
Quarter: 2005Q4

REPORT INFORMATION
  Report Type: 
  Country: None (occurrence: None)
  Receive Date: 20051011
  Receipt Date: 20051011
  Transmission Date: 20060501
  Serious: Yes (Hospitalization)
  Sender: FDA-Public Use
  Company Number: None

PATIENT
  Age: 77 Year
  Sex: Female
  Weight: 102.1 kg

DRUGS (13)
  1. DIGOXIN [Suspect]
     Indication: SUPRAVENTRICULAR TACHYCARDIA
     Dosage: 0.125MG DAILY PO
     Route: 048
     Dates: start: 20041010, end: 20051005
  2. NPH INSULIN [Concomitant]
  3. COUMADIN [Concomitant]
  4. ZELNORM [Concomitant]
  5. COLACE [Concomitant]
  6. DIATEX [Concomitant]
  7. SODIUM BICARBONATE [Concomitant]
  8. RENAGEL [Concomitant]
  9. ZOCOR [Concomitant]
  10. SYNTHROID [Concomitant]
  11. VITAMIN E [Concomitant]
  12. ALBUTEROL [Concomitant]
  13. MIRALAX [Concomitant]

REACTIONS (3)
  - HYPOKALAEMIA [None]
  - TACHYCARDIA [None]
  - THERAPEUTIC AGENT TOXICITY [None]
